FAERS Safety Report 10650886 (Version 1)
Quarter: 2014Q4

REPORT INFORMATION
  Report Type: Spontaneous
  Country: US (occurrence: US)
  Receive Date: 20141215
  Receipt Date: 20141215
  Transmission Date: 20150529
  Serious: Yes (Other)
  Sender: FDA-Public Use
  Company Number: US-THROMBOGENICS INC-SPO-2014-1066

PATIENT
  Sex: Female

DRUGS (2)
  1. JETREA [Suspect]
     Active Substance: OCRIPLASMIN
     Indication: MACULAR HOLE
  2. JETREA [Suspect]
     Active Substance: OCRIPLASMIN
     Indication: VITREOUS ADHESIONS
     Dosage: 0.125 MG, ONE TIME DOSE
     Route: 031

REACTIONS (9)
  - Visual impairment [Unknown]
  - Photopsia [Unknown]
  - Retinal detachment [Unknown]
  - Retinal injury [Not Recovered/Not Resolved]
  - Disease progression [Recovered/Resolved]
  - Visual acuity reduced [Not Recovered/Not Resolved]
  - Retinal tear [Unknown]
  - Macular hole [Recovered/Resolved]
  - Colour blindness acquired [Unknown]
